FAERS Safety Report 6253929-6 (Version None)
Quarter: 2009Q3

REPORT INFORMATION
  Report Type: 
  Country: None (occurrence: None)
  Receive Date: 20090702
  Receipt Date: 20090625
  Transmission Date: 20100115
  Serious: Yes (Other)
  Sender: FDA-Public Use
  Company Number: CH-BAYER-200918071GPV

PATIENT
  Age: 32 Year
  Sex: Female

DRUGS (1)
  1. INTERFERON BETA-1B [Suspect]
     Indication: MULTIPLE SCLEROSIS
     Route: 058
     Dates: start: 20030101

REACTIONS (7)
  - CUTANEOUS VASCULITIS [None]
  - ERYTHEMA [None]
  - INJECTION SITE NECROSIS [None]
  - LIVIDITY [None]
  - SKIN LESION [None]
  - SKIN PLAQUE [None]
  - SKIN ULCER [None]
